FAERS Safety Report 7000000-1 (Version None)
Quarter: 2010Q3

REPORT INFORMATION
  Report Type: 
  Country: None (occurrence: None)
  Receive Date: 20100920
  Receipt Date: 20070823
  Transmission Date: 20110219
  Serious: No
  Sender: FDA-Public Use
  Company Number: US-ASTRAZENECA-2006UW24073

PATIENT
  Age: 485 Month
  Sex: Female
  Weight: 103.9 kg

DRUGS (10)
  1. SEROQUEL [Suspect]
     Indication: DEPRESSION
     Route: 048
     Dates: start: 20000204, end: 20010223
  2. SEROQUEL [Suspect]
     Indication: ANXIETY
     Route: 048
     Dates: start: 20000204, end: 20010223
  3. SEROQUEL [Suspect]
     Route: 048
     Dates: start: 20011016
  4. SEROQUEL [Suspect]
     Route: 048
     Dates: start: 20011016
  5. ZYPREXA [Concomitant]
  6. GLUCOPHAGE [Concomitant]
     Dosage: TWICE A DAY
     Route: 048
     Dates: start: 20010813
  7. EFFEXOR [Concomitant]
     Route: 048
     Dates: start: 20011016
  8. VIOXX [Concomitant]
     Dates: start: 20020805
  9. REGLAN [Concomitant]
     Dates: start: 20020805
  10. AMBIEN [Concomitant]
     Dates: start: 20020805

REACTIONS (3)
  - BLOOD GLUCOSE FLUCTUATION [None]
  - DIABETES MELLITUS [None]
  - TYPE 2 DIABETES MELLITUS [None]
